FAERS Safety Report 7028167-X (Version None)
Quarter: 2010Q3

REPORT INFORMATION
  Report Type: 
  Country: None (occurrence: None)
  Receive Date: 20100930
  Receipt Date: 20100927
  Transmission Date: 20110219
  Serious: Yes (Other)
  Sender: FDA-Public Use
  Company Number: TRP_07292_2010

PATIENT
  Sex: Female

DRUGS (2)
  1. RIBASPHERE [Suspect]
     Indication: HEPATITIS C
     Dates: start: 20100611
  2. PEG-INTRON [Suspect]
     Indication: HEPATITIS C
     Dates: start: 20100611

REACTIONS (3)
  - ANAEMIA [None]
  - DECREASED APPETITE [None]
  - MUSCLE SPASMS [None]
